FAERS Safety Report 9967128 (Version 2)
Quarter: 2014Q1

REPORT INFORMATION
  Report Type: Report from Study
  Country: PR (occurrence: PR)
  Receive Date: 20140305
  Receipt Date: 20140305
  Transmission Date: 20141002
  Serious: No
  Sender: FDA-Public Use
  Company Number: PR-ABBVIE-13P-131-1128171-00

PATIENT
  Sex: Female
  Weight: 74 kg

DRUGS (1)
  1. HUMIRA [Suspect]
     Indication: PRODUCT USED FOR UNKNOWN INDICATION
     Dates: start: 201307

REACTIONS (5)
  - Dizziness [Recovered/Resolved]
  - Fatigue [Recovered/Resolved]
  - Dry mouth [Not Recovered/Not Resolved]
  - Glossodynia [Recovered/Resolved]
  - Oral discomfort [Recovered/Resolved]
